FAERS Safety Report 5903332-0 (Version None)
Quarter: 2008Q3

REPORT INFORMATION
  Report Type: 
  Country: None (occurrence: None)
  Receive Date: 20080926
  Receipt Date: 20080917
  Transmission Date: 20090109
  Serious: Yes (Disabling)
  Sender: FDA-Public Use
  Company Number: GXKR2008DK09007

PATIENT
  Age: 61 Year
  Sex: Male
  Weight: 108 kg

DRUGS (2)
  1. SIMVASTATIN [Suspect]
     Indication: HYPERCHOLESTEROLAEMIA
     Dosage: 10 MG QD, ORAL
     Route: 048
     Dates: start: 20050715, end: 20080707
  2. CENTYL (BENDROFLUMETHIAZIDE) [Concomitant]

REACTIONS (2)
  - INTERSTITIAL LUNG DISEASE [None]
  - PULMONARY FIBROSIS [None]
